FAERS Safety Report 15246629 (Version 1)
Quarter: 2018Q3

REPORT INFORMATION
  Report Type: Spontaneous
  Country: US (occurrence: US)
  Receive Date: 20180806
  Receipt Date: 20180806
  Transmission Date: 20181010
  Serious: Yes (Death, Hospitalization)
  Sender: FDA-Public Use
  Company Number: US-ALLERGAN-1838714US

PATIENT
  Age: 48 Year
  Sex: Female

DRUGS (3)
  1. HEROIN [Suspect]
     Active Substance: DIAMORPHINE
     Indication: SUBSTANCE USE
     Dosage: UNK
     Route: 065
  2. MORPHINE SULFATE UNK [Suspect]
     Active Substance: MORPHINE SULFATE
     Indication: SUBSTANCE USE
     Dosage: UNK
     Route: 065
  3. OXYCODONE [Suspect]
     Active Substance: OXYCODONE
     Indication: SUBSTANCE USE
     Dosage: UNK
     Route: 065

REACTIONS (7)
  - Toxic leukoencephalopathy [Fatal]
  - Overdose [Unknown]
  - Head injury [Unknown]
  - Drug abuse [Unknown]
  - Urinary tract infection [Unknown]
  - Fall [Unknown]
  - Off label use [Unknown]
